FAERS Safety Report 10143740 (Version 1)
Quarter: 2014Q2

REPORT INFORMATION
  Report Type: Spontaneous
  Country: AU (occurrence: AU)
  Receive Date: 20140430
  Receipt Date: 20140430
  Transmission Date: 20141212
  Serious: Yes (Hospitalization, Other)
  Sender: FDA-Public Use
  Company Number: AU-ACTAVIS PTY LTD-2014-08339

PATIENT
  Age: 53 Year
  Sex: Female

DRUGS (6)
  1. CLOZAPINE (UNKNOWN) [Suspect]
     Indication: SCHIZOPHRENIA
     Dosage: UNK
     Route: 065
     Dates: start: 201205
  2. CLOZAPINE (UNKNOWN) [Suspect]
     Dosage: 200 MG, DAILY
     Route: 065
     Dates: start: 201204
  3. VALPROIC ACID (UNKNOWN) [Suspect]
     Indication: PRODUCT USED FOR UNKNOWN INDICATION
     Dosage: UNK
     Route: 065
     Dates: start: 2012
  4. TRIMETHOPRIM (UNKNOWN) [Suspect]
     Indication: ESCHERICHIA INFECTION
     Dosage: UNK
     Route: 065
  5. AZITHROMYCIN (UNKNOWN) [Suspect]
     Indication: EVIDENCE BASED TREATMENT
     Dosage: 500 MG, UNKNOWN
     Route: 065
  6. CEFTRIAXONE (UNKNOWN) [Suspect]
     Indication: EVIDENCE BASED TREATMENT
     Dosage: 1 G, UNKNOWN
     Route: 065

REACTIONS (8)
  - Tubulointerstitial nephritis [Recovering/Resolving]
  - Proteinuria [Unknown]
  - Tremor [Unknown]
  - Diarrhoea [Unknown]
  - Abdominal pain [Recovered/Resolved]
  - Hypotension [Unknown]
  - Tachycardia [Unknown]
  - Gait disturbance [Unknown]
